FAERS Safety Report 22538917 (Version 1)
Quarter: 2023Q2

REPORT INFORMATION
  Report Type: Report from Study
  Country: CA (occurrence: CA)
  Receive Date: 20230609
  Receipt Date: 20230609
  Transmission Date: 20230721
  Serious: Yes (Other)
  Sender: FDA-Public Use
  Company Number: CA-JNJFOC-20230352707

PATIENT
  Age: 39 Year
  Sex: Female

DRUGS (1)
  1. REMICADE [Suspect]
     Active Substance: INFLIXIMAB
     Indication: Rheumatoid arthritis
     Route: 042

REACTIONS (6)
  - Kidney infection [Recovering/Resolving]
  - COVID-19 [Recovering/Resolving]
  - Pharyngitis streptococcal [Recovering/Resolving]
  - Influenza [Recovering/Resolving]
  - Urinary tract infection [Recovering/Resolving]
  - Exposure during pregnancy [Recovered/Resolved]

NARRATIVE: CASE EVENT DATE: 20230101
